FAERS Safety Report 16652124 (Version 1)
Quarter: 2019Q3

REPORT INFORMATION
  Report Type: Spontaneous
  Country: US (occurrence: US)
  Receive Date: 20190730
  Receipt Date: 20190730
  Transmission Date: 20191004
  Serious: Yes (Death, Life-Threatening, Hospitalization)
  Sender: FDA-Public Use
  Company Number: None

PATIENT
  Age: 61 Year
  Sex: Male
  Weight: 76.5 kg

DRUGS (6)
  1. LOVENOX [Concomitant]
     Active Substance: ENOXAPARIN SODIUM
  2. AVASTIN [Suspect]
     Active Substance: BEVACIZUMAB
     Indication: GLIOBLASTOMA
     Dosage: ?          OTHER FREQUENCY:EVERY 2 WEEKS;?
     Route: 042
     Dates: start: 20181203, end: 20181217
  3. KEPPRA [Concomitant]
     Active Substance: LEVETIRACETAM
  4. OPTUNE [Concomitant]
     Active Substance: DEVICE
  5. PROTONIX [Concomitant]
     Active Substance: PANTOPRAZOLE SODIUM
  6. DEXAMETHASONE. [Concomitant]
     Active Substance: DEXAMETHASONE

REACTIONS (7)
  - Post procedural complication [None]
  - Fistula [None]
  - Abdominal wound dehiscence [None]
  - Abdominal abscess [None]
  - Intestinal perforation [None]
  - Cerebrovascular accident [None]
  - Colectomy [None]

NARRATIVE: CASE EVENT DATE: 20181230
